FAERS Safety Report 19254634 (Version 2)
Quarter: 2021Q2

REPORT INFORMATION
  Report Type: Report from Study
  Country: IT (occurrence: IT)
  Receive Date: 20210513
  Receipt Date: 20210521
  Transmission Date: 20210717
  Serious: Yes (Hospitalization)
  Sender: FDA-Public Use
  Company Number: IT-TEVA-2021-IT-1909465

PATIENT
  Age: 30 Year
  Sex: Male

DRUGS (4)
  1. MIRTAZAPINE. [Suspect]
     Active Substance: MIRTAZAPINE
     Indication: DRUG ABUSE
     Dosage: 10DF
     Route: 048
     Dates: start: 20210408, end: 20210408
  2. LARGACTIL [Suspect]
     Active Substance: CHLORPROMAZINE
     Indication: DRUG ABUSE
     Dosage: 20DF
     Route: 048
     Dates: start: 20210408, end: 20210408
  3. TAVOR [Concomitant]
  4. DEPAKIN 500 MG GRANULATO A RILASCIO MODIFICATO [Suspect]
     Active Substance: VALPROATE SODIUM
     Indication: DRUG ABUSE
     Dosage: 14DF
     Route: 048
     Dates: start: 20210408, end: 20210408

REACTIONS (3)
  - Sopor [Not Recovered/Not Resolved]
  - Drug abuse [Not Recovered/Not Resolved]
  - Tachycardia [Not Recovered/Not Resolved]

NARRATIVE: CASE EVENT DATE: 20210408
